FAERS Safety Report 8165349-8 (Version None)
Quarter: 2012Q1

REPORT INFORMATION
  Report Type: 
  Country: None (occurrence: None)
  Receive Date: 20120223
  Receipt Date: 20120223
  Transmission Date: 20120608
  Serious: Yes (Hospitalization)
  Sender: FDA-Public Use
  Company Number: None

PATIENT
  Sex: Male
  Weight: 75.07 kg

DRUGS (8)
  1. SPIRIVA HANDIHALER (TIOTROPIUM BROMIDE MONOHYDRATE) [Concomitant]
  2. ALBUTEROL SULFATE [Concomitant]
  3. AFINITOR [Suspect]
     Indication: NON-SMALL CELL LUNG CANCER
     Dosage: EVEROLIMUS 2.5MG DAILY PO
     Route: 048
     Dates: start: 20120125, end: 20120208
  4. SYMBICORT [Concomitant]
  5. OXYCODONE HCL [Concomitant]
  6. LOVENOX [Concomitant]
  7. BEZ235 [Suspect]
     Dosage: BEZ235  200MG DAILY PO
     Route: 048
  8. IMDUR [Concomitant]

REACTIONS (4)
  - DYSPNOEA [None]
  - RASH [None]
  - BODY TEMPERATURE INCREASED [None]
  - COUGH [None]
